FAERS Safety Report 16183461 (Version 1)
Quarter: 2019Q2

REPORT INFORMATION
  Report Type: Spontaneous
  Country: DE (occurrence: DE)
  Receive Date: 20190411
  Receipt Date: 20190411
  Transmission Date: 20190711
  Serious: Yes (Hospitalization)
  Sender: FDA-Public Use
  Company Number: PHHY2019DE080341

PATIENT
  Age: 60 Year
  Sex: Female

DRUGS (17)
  1. PERAMPANEL [Suspect]
     Active Substance: PERAMPANEL
     Indication: PRODUCT USED FOR UNKNOWN INDICATION
     Dosage: 2 MG, QD
     Route: 065
  2. LEVETIRACETAM. [Suspect]
     Active Substance: LEVETIRACETAM
     Dosage: 1500 MG, QD
     Route: 065
  3. GABAPENTIN. [Suspect]
     Active Substance: GABAPENTIN
     Indication: MYOCLONIC EPILEPSY
     Dosage: UNK
     Route: 065
  4. LEVETIRACETAM. [Suspect]
     Active Substance: LEVETIRACETAM
     Indication: SEIZURE
     Dosage: 500 MG, QD
     Route: 065
  5. ESLICARBAZEPINE [Suspect]
     Active Substance: ESLICARBAZEPINE
     Indication: SEIZURE
     Dosage: UNK
     Route: 065
  6. CANNABIDIOL [Suspect]
     Active Substance: CANNABIDIOL
     Indication: PRODUCT USED FOR UNKNOWN INDICATION
     Dosage: WHICH WAS INCREASED OVER FOUR DAYS TO 750 MG DAILY
     Route: 065
  7. BRIVARACETAM [Suspect]
     Active Substance: BRIVARACETAM
     Indication: PRODUCT USED FOR UNKNOWN INDICATION
     Dosage: 150 MG, QD
     Route: 065
  8. CLONAZEPAM. [Suspect]
     Active Substance: CLONAZEPAM
     Indication: MYOCLONIC EPILEPSY
     Dosage: 2 MG, QD
     Route: 065
  9. ZONISAMIDE. [Suspect]
     Active Substance: ZONISAMIDE
     Indication: SEIZURE
     Dosage: UNK
     Route: 065
  10. DRONABINOL. [Suspect]
     Active Substance: DRONABINOL
     Indication: SEIZURE
     Dosage: 20 DROP, QD
     Route: 065
  11. PERAMPANEL [Suspect]
     Active Substance: PERAMPANEL
     Dosage: 8 MG, QD
     Route: 065
  12. PERAMPANEL [Suspect]
     Active Substance: PERAMPANEL
     Dosage: 4 MG, QD
     Route: 065
  13. DRONABINOL. [Suspect]
     Active Substance: DRONABINOL
     Dosage: 30 DROP, QD
     Route: 065
  14. LAMOTRIGINE. [Suspect]
     Active Substance: LAMOTRIGINE
     Indication: SEIZURE
     Dosage: UNK
     Route: 065
  15. TOPIRAMATE. [Suspect]
     Active Substance: TOPIRAMATE
     Indication: SEIZURE
     Dosage: UNK
     Route: 065
  16. PREGABALIN. [Suspect]
     Active Substance: PREGABALIN
     Indication: SEIZURE
     Dosage: UNK
     Route: 065
  17. PIRACETAM [Suspect]
     Active Substance: PIRACETAM
     Indication: PRODUCT USED FOR UNKNOWN INDICATION
     Dosage: UNK
     Route: 065

REACTIONS (15)
  - Dysarthria [Unknown]
  - Dystonia [Unknown]
  - Cerebellar ataxia [Unknown]
  - Rash [Unknown]
  - Vomiting [Unknown]
  - Fatigue [Unknown]
  - Speech disorder [Unknown]
  - Drug ineffective [Unknown]
  - Aggression [Unknown]
  - Salivary hypersecretion [Unknown]
  - Condition aggravated [Unknown]
  - Drug intolerance [Unknown]
  - Nausea [Unknown]
  - Therapeutic response decreased [Unknown]
  - Facial paresis [Unknown]
